FAERS Safety Report 9790619 (Version 1)
Quarter: 2013Q4

REPORT INFORMATION
  Report Type: Spontaneous
  Country: US (occurrence: US)
  Receive Date: 20131231
  Receipt Date: 20131231
  Transmission Date: 20140711
  Serious: Yes (Other)
  Sender: FDA-Public Use
  Company Number: US-PFIZER INC-2013373203

PATIENT
  Sex: Female

DRUGS (2)
  1. LYRICA [Suspect]
     Indication: LYME DISEASE
     Dosage: UNK
  2. LYRICA [Suspect]
     Indication: NEUROPATHY PERIPHERAL

REACTIONS (2)
  - Off label use [Unknown]
  - Weight increased [Unknown]
